FAERS Safety Report 20507087 (Version 1)
Quarter: 2022Q1

REPORT INFORMATION
  Report Type: Report from Study
  Country: US (occurrence: US)
  Receive Date: 20220223
  Receipt Date: 20220223
  Transmission Date: 20220423
  Serious: Yes (Death)
  Sender: FDA-Public Use
  Company Number: US-GILEAD-2022-0570504

PATIENT
  Age: 59 Year
  Sex: Male

DRUGS (8)
  1. IDELALISIB [Suspect]
     Active Substance: IDELALISIB
     Indication: Non-Hodgkin^s lymphoma
     Dosage: 100 MG, BID
     Route: 048
  2. METOCLOPRAMIDE [Concomitant]
     Active Substance: METOCLOPRAMIDE
  3. OMEPRAZOLE [Concomitant]
     Active Substance: OMEPRAZOLE
  4. NEPHRO-VITE RX [Concomitant]
  5. RENAGEL [SEVELAMER CARBONATE] [Concomitant]
  6. CALCITRIOL [Concomitant]
     Active Substance: CALCITRIOL
  7. CHOLECALCIFEROL [Concomitant]
     Active Substance: CHOLECALCIFEROL
  8. COBAMAMIDE [Concomitant]
     Active Substance: COBAMAMIDE

REACTIONS (1)
  - COVID-19 [Fatal]
